FAERS Safety Report 6803100-1 (Version None)
Quarter: 2010Q2

REPORT INFORMATION
  Report Type: 
  Country: None (occurrence: None)
  Receive Date: 20100628
  Receipt Date: 20100617
  Transmission Date: 20101027
  Serious: Yes (Hospitalization)
  Sender: FDA-Public Use
  Company Number: A0796468A

PATIENT
  Age: 51 Year
  Sex: Female

DRUGS (11)
  1. AVANDIA [Suspect]
     Dosage: 8MG PER DAY
     Route: 048
     Dates: start: 20030306, end: 20080428
  2. GLUCOPHAGE [Concomitant]
  3. GLUCOTROL [Concomitant]
  4. NEXIUM [Concomitant]
  5. TOPAMAX [Concomitant]
  6. ADVAIR DISKUS 100/50 [Concomitant]
  7. PAXIL [Concomitant]
  8. WELLBUTRIN [Concomitant]
  9. ALBUTEROL [Concomitant]
  10. ATROVENT [Concomitant]
  11. GEMFIBROZIL [Concomitant]

REACTIONS (7)
  - CEREBROVASCULAR ACCIDENT [None]
  - HEADACHE [None]
  - MENTAL IMPAIRMENT [None]
  - MOBILITY DECREASED [None]
  - PARALYSIS [None]
  - SPEECH DISORDER [None]
  - VISUAL IMPAIRMENT [None]
